FAERS Safety Report 8230234-X (Version None)
Quarter: 2012Q1

REPORT INFORMATION
  Report Type: 
  Country: None (occurrence: None)
  Receive Date: 20120321
  Receipt Date: 20120321
  Transmission Date: 20120608
  Serious: Yes (Other)
  Sender: FDA-Public Use
  Company Number: None

PATIENT
  Sex: Female

DRUGS (2)
  1. LYMPHAZURIN [Suspect]
  2. LYMPHAZURIN [Suspect]

REACTIONS (6)
  - WHEEZING [None]
  - ANAPHYLACTIC REACTION [None]
  - PRURITUS [None]
  - BLOOD PRESSURE DECREASED [None]
  - POST PROCEDURAL COMPLICATION [None]
  - FEELING HOT [None]
